FAERS Safety Report 7320001-3 (Version None)
Quarter: 2011Q1

REPORT INFORMATION
  Report Type: 
  Country: None (occurrence: None)
  Receive Date: 20110228
  Receipt Date: 20110222
  Transmission Date: 20110831
  Serious: Yes (Other)
  Sender: FDA-Public Use
  Company Number: JP-PFIZER INC-2011038689

PATIENT

DRUGS (1)
  1. AZULFIDINE [Suspect]
     Dosage: UNK
     Route: 048

REACTIONS (2)
  - CREATININE RENAL CLEARANCE INCREASED [None]
  - RENAL DISORDER [None]
